FAERS Safety Report 4948787-3 (Version None)
Quarter: 2006Q1

REPORT INFORMATION
  Report Type: 
  Country: None (occurrence: None)
  Receive Date: 20060315
  Receipt Date: 20060302
  Transmission Date: 20060701
  Serious: Yes (Death)
  Sender: FDA-Public Use
  Company Number: USA-2006-0023662

PATIENT
  Age: 36 Year
  Sex: Male

DRUGS (4)
  1. OXYCODONE HYDROCHLORIDE (SIMILAR TO NDA 20-553)(OXYCODONE HYDROCHLORID [Suspect]
  2. HYDROCODONE BITARTRATE [Suspect]
  3. METAMFETAMINE(METAMFETAMINE) [Suspect]
  4. ETHANOL (ETHANOL) [Suspect]

REACTIONS (6)
  - ACCIDENTAL DEATH [None]
  - ARTERIOSCLEROSIS [None]
  - DRUG TOXICITY [None]
  - HYPERTENSIVE HEART DISEASE [None]
  - MULTIPLE DRUG OVERDOSE ACCIDENTAL [None]
  - POLYSUBSTANCE ABUSE [None]
